FAERS Safety Report 9394729 (Version 1)
Quarter: 2013Q3

REPORT INFORMATION
  Report Type: Spontaneous
  Country: JO (occurrence: JO)
  Receive Date: 20130711
  Receipt Date: 20130711
  Transmission Date: 20140515
  Serious: Yes (Life-Threatening, Hospitalization)
  Sender: FDA-Public Use
  Company Number: JO-MYLANLABS-2013S1014596

PATIENT
  Age: 24 Year
  Sex: Male

DRUGS (7)
  1. PETHIDINE [Suspect]
     Indication: ANALGESIC THERAPY
     Route: 030
  2. FENTANYL [Interacting]
     Indication: INDUCTION OF ANAESTHESIA
     Route: 042
  3. FLUOXETINE [Interacting]
     Indication: DEPRESSION
     Dosage: 20 MG/DAY
     Route: 065
  4. MIDAZOLAM [Concomitant]
     Indication: INDUCTION OF ANAESTHESIA
     Route: 042
  5. PROPOFOL [Concomitant]
     Indication: INDUCTION OF ANAESTHESIA
     Route: 042
  6. SEVOFLURANE [Concomitant]
     Indication: MAINTENANCE OF ANAESTHESIA
     Route: 065
  7. MORPHINE [Concomitant]
     Route: 042

REACTIONS (2)
  - Serotonin syndrome [Recovered/Resolved]
  - Drug interaction [Recovered/Resolved]
